FAERS Safety Report 6203598-6 (Version None)
Quarter: 2009Q2

REPORT INFORMATION
  Report Type: 
  Country: None (occurrence: None)
  Receive Date: 20090522
  Receipt Date: 20090522
  Transmission Date: 20091009
  Serious: No
  Sender: FDA-Public Use
  Company Number: None

PATIENT
  Age: 29 Year
  Sex: Female

DRUGS (1)
  1. YASMIN [Suspect]
     Indication: CONTRACEPTION
     Dosage: ONE EVERY DAY PO
     Route: 048
     Dates: start: 20090517, end: 20090520

REACTIONS (4)
  - FEELING ABNORMAL [None]
  - INFLUENZA [None]
  - MIGRAINE [None]
  - NAUSEA [None]
